FAERS Safety Report 8799116 (Version 1)
Quarter: 2012Q4

REPORT INFORMATION
  Report Type: 
  Country: US (occurrence: US)
  Receive Date: 20120920
  Receipt Date: 20120920
  Transmission Date: 20130627
  Serious: No
  Sender: FDA-Public Use
  Company Number: US-ASTRAZENECA-2011SE77136

PATIENT

DRUGS (2)
  1. LISINOPRIL [Suspect]
     Route: 048
  2. SEROQUEL XR [Concomitant]
     Dosage: ONE TABLET BY MOUTH EVERY NIGHT ONE HOUR BEFORE MEALS
     Route: 048

REACTIONS (2)
  - Pharyngeal oedema [Unknown]
  - Drug hypersensitivity [Unknown]
